FAERS Safety Report 8612507-1 (Version None)
Quarter: 2012Q3

REPORT INFORMATION
  Report Type: 
  Country: None (occurrence: None)
  Receive Date: 20120822
  Receipt Date: 20120816
  Transmission Date: 20120928
  Serious: Yes (Other)
  Sender: FDA-Public Use
  Company Number: PHHY2012GB063709

PATIENT
  Age: 36 Year
  Sex: Male
  Weight: 126 kg

DRUGS (5)
  1. LOVAZA [Interacting]
  2. FEXOFENADINE HCL [Concomitant]
  3. SIMVASTATIN [Suspect]
     Indication: DIABETES MELLITUS
     Dosage: 20 MG, BID
     Route: 048
     Dates: start: 20120528, end: 20120610
  4. GLUCOPHAGE XR [Concomitant]
  5. DIAMICRON MR [Concomitant]

REACTIONS (10)
  - VISION BLURRED [None]
  - EYE PRURITUS [None]
  - NAUSEA [None]
  - EYE SWELLING [None]
  - HYPERGLYCAEMIA [None]
  - DIZZINESS [None]
  - DIARRHOEA [None]
  - DRUG INTERACTION [None]
  - DRY EYE [None]
  - HEADACHE [None]
